FAERS Safety Report 7227940-2 (Version None)
Quarter: 2011Q1

REPORT INFORMATION
  Report Type: 
  Country: None (occurrence: None)
  Receive Date: 20110114
  Receipt Date: 20110106
  Transmission Date: 20110831
  Serious: Yes (Hospitalization)
  Sender: FDA-Public Use
  Company Number: NL-MEDIMMUNE-MEDI-0012182

PATIENT
  Sex: Female
  Weight: 6.2 kg

DRUGS (6)
  1. SYNAGIS [Suspect]
     Route: 030
     Dates: start: 20101209, end: 20101209
  2. SYNAGIS [Suspect]
     Route: 030
     Dates: start: 20110106, end: 20110106
  3. ESOMEPRAZOLE [Concomitant]
     Dates: start: 20100101
  4. SPIRONOLACTONE [Concomitant]
     Dates: start: 20100101
  5. DOMPERIDONE [Concomitant]
     Dates: start: 20100101
  6. HYDROCHLOROTHIAZIDE [Concomitant]
     Dates: start: 20100101

REACTIONS (4)
  - COUGH [None]
  - RESPIRATORY SYNCYTIAL VIRUS TEST POSITIVE [None]
  - SENSE OF OPPRESSION [None]
  - INFANTILE SPITTING UP [None]
